FAERS Safety Report 5019966-4 (Version None)
Quarter: 2006Q2

REPORT INFORMATION
  Report Type: 
  Country: None (occurrence: None)
  Receive Date: 20060601
  Receipt Date: 20060522
  Transmission Date: 20061013
  Serious: Yes (Hospitalization)
  Sender: FDA-Public Use
  Company Number: HQWYE451122MAY06

PATIENT
  Age: 50 Year
  Sex: Male

DRUGS (3)
  1. AMIODARONE HCL [Suspect]
     Indication: ATRIAL FIBRILLATION
     Dosage: 1100 MG 1X PER 1 DAY ORAL
     Route: 048
  2. DIGITOXIN TAB [Concomitant]
  3. CARVEDILOL [Concomitant]

REACTIONS (4)
  - BUNDLE BRANCH BLOCK LEFT [None]
  - ELECTROCARDIOGRAM QT PROLONGED [None]
  - HAEMODYNAMIC INSTABILITY [None]
  - TORSADE DE POINTES [None]
